FAERS Safety Report 19931595 (Version 2)
Quarter: 2021Q4

REPORT INFORMATION
  Report Type: Spontaneous
  Country: US (occurrence: US)
  Receive Date: 20211008
  Receipt Date: 20211125
  Transmission Date: 20220303
  Serious: Yes (Other)
  Sender: FDA-Public Use
  Company Number: US-JNJFOC-20211004257

PATIENT
  Age: 3 Decade
  Sex: Female

DRUGS (8)
  1. ELMIRON [Suspect]
     Active Substance: PENTOSAN POLYSULFATE SODIUM
     Indication: Cystitis interstitial
     Dosage: 3-100 MG CAPSULES 2 PER DAY FOR A TOTAL OF 600 MG A DAY.
     Route: 048
     Dates: start: 1998, end: 200311
  2. ELMIRON [Suspect]
     Active Substance: PENTOSAN POLYSULFATE SODIUM
     Dosage: 3-100 MG CAPSULES 2 PER DAY FOR A TOTAL OF 600 MG A DAY.
     Route: 048
     Dates: start: 200403, end: 201404
  3. ELMIRON [Suspect]
     Active Substance: PENTOSAN POLYSULFATE SODIUM
     Dosage: 4-100 MG CAPSULES 2 PER DAY FOR A TOTAL OF 400 MG A DAY.
     Route: 048
     Dates: start: 201404, end: 20210422
  4. DIAZEPAM [Concomitant]
     Active Substance: DIAZEPAM
     Indication: Anxiety
     Dates: start: 20181130
  5. LIDOCAINE [Concomitant]
     Active Substance: LIDOCAINE
     Indication: Pain
     Dosage: 5%
     Dates: start: 20190307
  6. ONDANSETRON [Concomitant]
     Active Substance: ONDANSETRON
     Indication: Nausea
     Dates: start: 20191017
  7. SPIRONOLACTONE [Concomitant]
     Active Substance: SPIRONOLACTONE
     Indication: Adrenal suppression
     Route: 048
     Dates: start: 20210809
  8. TIZANIDINE [Concomitant]
     Active Substance: TIZANIDINE
     Indication: Muscle relaxant therapy
     Dates: start: 20210205

REACTIONS (4)
  - Maculopathy [Not Recovered/Not Resolved]
  - Age-related macular degeneration [Unknown]
  - Off label use [Unknown]
  - Product use issue [Unknown]

NARRATIVE: CASE EVENT DATE: 19980101
